FAERS Safety Report 5227140-1 (Version None)
Quarter: 2007Q1

REPORT INFORMATION
  Report Type: 
  Country: None (occurrence: None)
  Receive Date: 20070201
  Receipt Date: 20070201
  Transmission Date: 20070707
  Serious: Yes (Hospitalization)
  Sender: FDA-Public Use
  Company Number: None

PATIENT
  Age: 55 Year
  Sex: Male
  Weight: 56.3 kg

DRUGS (1)
  1. ALPRAZOLAM [Suspect]
     Indication: ANXIETY
     Dosage: TAKE ONE TABLET 4 TIMES A DAY PO
     Route: 048
     Dates: start: 19970626, end: 20070119

REACTIONS (2)
  - DRUG SCREEN POSITIVE [None]
  - SOMNOLENCE [None]
